FAERS Safety Report 7965939 (Version 2)
Quarter: 2013Q2

REPORT INFORMATION
  Report Type: Report from Study
  Country: US (occurrence: US)
  Receive Date: 20110531
  Receipt Date: 20130529
  Transmission Date: 20140414
  Serious: Yes (Hospitalization)
  Sender: FDA-Public Use
  Company Number: US-BRISTOL-MYERS SQUIBB COMPANY-15769615

PATIENT
  Age: 57 Year
  Sex: Female

DRUGS (9)
  1. CISPLATIN [Suspect]
     Indication: NON-SMALL CELL LUNG CANCER
     Dosage: 110 MG:21FEB-14MAR2011.22 D. 56MG/M2 11 APR11-ONG
     Route: 065
     Dates: start: 20110221
  2. GEMZAR [Suspect]
     Indication: NON-SMALL CELL LUNG CANCER
     Dosage: REDUCED TO 950MG/M2
     Route: 065
     Dates: start: 20110221
  3. LASIX [Concomitant]
  4. PRILOSEC [Concomitant]
  5. POTASSIUM [Concomitant]
  6. SPIRIVA [Concomitant]
  7. ALBUTEROL [Concomitant]
  8. NEUPOGEN [Concomitant]
     Dates: start: 20110419, end: 20110422
  9. MAGNESIUM [Concomitant]
     Dates: start: 201104

REACTIONS (1)
  - Presyncope [Recovered/Resolved]
